FAERS Safety Report 8761327 (Version 3)
Quarter: 2013Q2

REPORT INFORMATION
  Report Type: Spontaneous
  Country: US (occurrence: US)
  Receive Date: 20120830
  Receipt Date: 20130514
  Transmission Date: 20140414
  Serious: Yes (Hospitalization, Other)
  Sender: FDA-Public Use
  Company Number: US-US-EMD SERONO, INC.-7156881

PATIENT
  Sex: Female

DRUGS (2)
  1. REBIF [Suspect]
     Indication: MULTIPLE SCLEROSIS
     Route: 058
     Dates: start: 20090128
  2. REBIF [Suspect]
     Route: 058
     Dates: end: 201210

REACTIONS (10)
  - Heart valve incompetence [Not Recovered/Not Resolved]
  - Vomiting [Unknown]
  - Aggression [Unknown]
  - Screaming [Unknown]
  - Vitreous floaters [Unknown]
  - Drug hypersensitivity [Unknown]
  - Injection site erythema [Recovered/Resolved]
  - Injection site pruritus [Recovered/Resolved]
  - Injection site pain [Recovered/Resolved]
  - Injection site haemorrhage [Recovered/Resolved]
